FAERS Safety Report 7828655-X (Version None)
Quarter: 2011Q4

REPORT INFORMATION
  Report Type: 
  Country: None (occurrence: None)
  Receive Date: 20111020
  Receipt Date: 20111011
  Transmission Date: 20120403
  Serious: Yes (Other)
  Sender: FDA-Public Use
  Company Number: US-JNJFOC-20111006927

PATIENT
  Age: 18 Year
  Sex: Female
  Weight: 65.77 kg

DRUGS (3)
  1. MONISTAT 7 VAGINAL CREAM WITH REUSABLE APPLICATOR [Suspect]
     Route: 067
  2. UNKNOWN MEDICATION [Suspect]
     Indication: PRODUCT USED FOR UNKNOWN INDICATION
     Route: 065
  3. MONISTAT 7 VAGINAL CREAM WITH REUSABLE APPLICATOR [Suspect]
     Indication: FUNGAL INFECTION
     Dosage: DURING THE DAY AND AGAIN AT NIGHT
     Route: 067
     Dates: start: 20111010, end: 20111011

REACTIONS (3)
  - MATERNAL EXPOSURE DURING PREGNANCY [None]
  - VAGINAL HAEMORRHAGE [None]
  - INCORRECT DOSE ADMINISTERED [None]
